FAERS Safety Report 8792453 (Version 1)
Quarter: 2012Q4

REPORT INFORMATION
  Report Type: 
  Country: AR (occurrence: AR)
  Receive Date: 20120918
  Receipt Date: 20120918
  Transmission Date: 20130627
  Serious: Yes (Other)
  Sender: FDA-Public Use
  Company Number: PHHY2012AR080175

PATIENT
  Sex: Female

DRUGS (3)
  1. RASILEZ [Suspect]
     Indication: BLOOD PRESSURE
  2. GALVUS [Suspect]
     Indication: DIABETES MELLITUS
  3. DIOVAN [Suspect]
     Indication: BLOOD PRESSURE

REACTIONS (1)
  - Nasal cavity cancer [Recovered/Resolved]
